FAERS Safety Report 22636556 (Version 1)
Quarter: 2023Q2

REPORT INFORMATION
  Report Type: Spontaneous
  Country: JP (occurrence: JP)
  Receive Date: 20230623
  Receipt Date: 20230623
  Transmission Date: 20230722
  Serious: Yes (Hospitalization, Other)
  Sender: FDA-Public Use
  Company Number: JP-DAIICHI SANKYO, INC.-DSJ-2023-125078

PATIENT
  Age: 35 Year
  Sex: Female

DRUGS (9)
  1. EDOXABAN TOSYLATE [Suspect]
     Active Substance: EDOXABAN TOSYLATE
     Indication: Segmented hyalinising vasculitis
     Dosage: 30 MG/DAY
     Route: 065
     Dates: start: 2017
  2. EDOXABAN TOSYLATE [Suspect]
     Active Substance: EDOXABAN TOSYLATE
     Dosage: 30 MG/DAY
     Route: 065
     Dates: start: 202104, end: 202104
  3. BERAPROST SODIUM [Concomitant]
     Active Substance: BERAPROST SODIUM
     Indication: Segmented hyalinising vasculitis
     Dosage: 120 UG/DAY
     Route: 065
  4. SARPOGRELATE [SARPOGRELATE HYDROCHLORIDE] [Concomitant]
     Indication: Segmented hyalinising vasculitis
     Dosage: 200 MG/DAY
     Route: 065
  5. SARPOGRELATE [SARPOGRELATE HYDROCHLORIDE] [Concomitant]
     Dosage: 200 MG/DAY
     Route: 065
     Dates: start: 202104
  6. ASPIRIN [Concomitant]
     Active Substance: ASPIRIN
     Indication: Segmented hyalinising vasculitis
     Dosage: 100 MG/DAY
     Route: 065
  7. ASPIRIN [Concomitant]
     Active Substance: ASPIRIN
     Dosage: 100 MG/DAY
     Route: 065
     Dates: end: 202104
  8. DAPSONE [Concomitant]
     Active Substance: DAPSONE
     Indication: Segmented hyalinising vasculitis
     Dosage: 25 MG/DAY
     Route: 065
  9. DAPSONE [Concomitant]
     Active Substance: DAPSONE
     Dosage: 37.5 MG/DAY
     Route: 065
     Dates: start: 202104

REACTIONS (4)
  - Endometriosis [Unknown]
  - Endometriosis [Unknown]
  - Heavy menstrual bleeding [Unknown]
  - Off label use [Unknown]

NARRATIVE: CASE EVENT DATE: 20170101
